FAERS Safety Report 12567012 (Version 1)
Quarter: 2016Q3

REPORT INFORMATION
  Report Type: Report from Study
  Country: IT (occurrence: IT)
  Receive Date: 20160718
  Receipt Date: 20160718
  Transmission Date: 20161109
  Serious: Yes (Death, Hospitalization)
  Sender: FDA-Public Use
  Company Number: PHHO2015IT011878

PATIENT
  Age: 49 Year
  Sex: Male
  Weight: 79 kg

DRUGS (5)
  1. INC424 [Suspect]
     Active Substance: RUXOLITINIB
     Indication: MYELOFIBROSIS
     Dosage: 15 MG, BID
     Route: 048
     Dates: start: 20130909, end: 20150715
  2. ALLOPURINOL. [Concomitant]
     Active Substance: ALLOPURINOL
     Indication: HYPERURICAEMIA
     Dosage: 300 MG, QD
     Route: 048
     Dates: start: 2012
  3. LDE 225 [Suspect]
     Active Substance: ERISMODEGIB
     Indication: MYELOFIBROSIS
     Dosage: 200 MG, QD
     Route: 048
     Dates: start: 20130909, end: 201506
  4. CANDESARTAN [Concomitant]
     Active Substance: CANDESARTAN
     Indication: HYPERTENSION
     Dosage: 32 MG, QD
     Route: 048
     Dates: start: 20150617
  5. HYDROCHLOORTHIAZIDE [Concomitant]
     Active Substance: HYDROCHLOROTHIAZIDE
     Indication: HYPERTENSION
     Dosage: 12.5 MG, QD
     Route: 048
     Dates: start: 20150617

REACTIONS (2)
  - Acute graft versus host disease [Fatal]
  - Vertebral column mass [Not Recovered/Not Resolved]

NARRATIVE: CASE EVENT DATE: 20150428
